FAERS Safety Report 14547350 (Version 2)
Quarter: 2018Q2

REPORT INFORMATION
  Report Type: Report from Study
  Country: BR (occurrence: BR)
  Receive Date: 20180219
  Receipt Date: 20180526
  Transmission Date: 20180711
  Serious: Yes (Death)
  Sender: FDA-Public Use
  Company Number: PHHY2018BR027703

PATIENT
  Age: 87 Year
  Sex: Male
  Weight: 55 kg

DRUGS (1)
  1. EXELON PATCH [Suspect]
     Active Substance: RIVASTIGMINE
     Indication: PRODUCT USED FOR UNKNOWN INDICATION
     Dosage: 9.5 MG, QD PATCH 10 (CM2)
     Route: 062

REACTIONS (2)
  - Multiple organ dysfunction syndrome [Fatal]
  - Cardiac failure [Fatal]

NARRATIVE: CASE EVENT DATE: 20170717
